FAERS Safety Report 6259740-4 (Version None)
Quarter: 2009Q3

REPORT INFORMATION
  Report Type: 
  Country: None (occurrence: None)
  Receive Date: 20090706
  Receipt Date: 20090706
  Transmission Date: 20100115
  Serious: Yes (Life-Threatening)
  Sender: FDA-Public Use
  Company Number: None

PATIENT
  Age: 42 Year
  Sex: Male
  Weight: 129.2752 kg

DRUGS (2)
  1. ZICAM COLD REMEDY SWABS MATRIXX INITIATIVES, INC [Suspect]
     Indication: NASOPHARYNGITIS
     Dosage: ONE SWAB EVERY FOUR HOURS NASAL
     Route: 045
     Dates: start: 20080129, end: 20080206
  2. ZICAM COLD REMEDY SWABS MATRIXX INITIATIVES, INC [Suspect]
     Indication: NASOPHARYNGITIS
     Dosage: ONE SWAB EVERY FOUR HOURS NASAL
     Route: 045
     Dates: start: 20081001, end: 20081101

REACTIONS (3)
  - AGEUSIA [None]
  - ANOSMIA [None]
  - GASTROINTESTINAL DISORDER [None]
